FAERS Safety Report 23973519 (Version 1)
Quarter: 2024Q2

REPORT INFORMATION
  Report Type: Spontaneous
  Country: US (occurrence: None)
  Receive Date: 20240613
  Receipt Date: 20240613
  Transmission Date: 20240716
  Serious: Yes (Hospitalization)
  Sender: FDA-Public Use
  Company Number: None

PATIENT
  Age: 52 Year
  Sex: Female

DRUGS (12)
  1. MYCOPHENOLIC ACID [Suspect]
     Active Substance: MYCOPHENOLIC ACID
     Indication: Prophylaxis against transplant rejection
     Dosage: 500 MG TWICE A DAY ORAL?
     Route: 048
  2. CYCLOSPORINE [Suspect]
     Active Substance: CYCLOSPORINE
     Indication: Prophylaxis against transplant rejection
     Dosage: 50 MG TWICE A DAY ORAL
     Route: 048
  3. NORETHINDRONE [Concomitant]
     Active Substance: NORETHINDRONE
  4. TORSEMIDE [Concomitant]
     Active Substance: TORSEMIDE
  5. PREDNISONE [Concomitant]
     Active Substance: PREDNISONE
  6. HYDROXYZINE [Concomitant]
     Active Substance: HYDROXYZINE HYDROCHLORIDE
  7. CETIRIZINE [Concomitant]
     Active Substance: CETIRIZINE HYDROCHLORIDE
  8. NIFEDIPINE [Concomitant]
     Active Substance: NIFEDIPINE
  9. AZITHROMYCIN [Concomitant]
     Active Substance: AZITHROMYCIN
  10. VITAMIN B12 [Concomitant]
     Active Substance: CYANOCOBALAMIN
  11. CARVEDILOL [Concomitant]
     Active Substance: CARVEDILOL
  12. DOCUSATE [Concomitant]
     Active Substance: DOCUSATE

REACTIONS (2)
  - Pulmonary oedema [None]
  - Pericardial effusion [None]

NARRATIVE: CASE EVENT DATE: 20240613
